FAERS Safety Report 15656234 (Version 1)
Quarter: 2018Q4

REPORT INFORMATION
  Report Type: Spontaneous
  Country: US (occurrence: US)
  Receive Date: 20181126
  Receipt Date: 20181126
  Transmission Date: 20190205
  Serious: Yes (Other)
  Sender: FDA-Public Use
  Company Number: US-LPDUSPRD-20182115

PATIENT

DRUGS (3)
  1. PREDNISONE. [Concomitant]
     Active Substance: PREDNISONE
     Dosage: 20 MG DAILY
     Route: 065
     Dates: start: 20181104, end: 20181106
  2. INJECTAFER [Suspect]
     Active Substance: FERRIC CARBOXYMALTOSE
     Dosage: UNKNOWN
     Route: 051
     Dates: start: 20181030, end: 20181030
  3. BENADRYL [Suspect]
     Active Substance: DIPHENHYDRAMINE HYDROCHLORIDE
     Dosage: UNKNOWN
     Route: 042
     Dates: start: 20181030, end: 20181030

REACTIONS (8)
  - Pallor [Unknown]
  - Dizziness [Unknown]
  - Blood pressure increased [Unknown]
  - Insomnia [Unknown]
  - Heart rate increased [Unknown]
  - Fatigue [Unknown]
  - Hypersensitivity [Unknown]
  - Dysgeusia [None]

NARRATIVE: CASE EVENT DATE: 2018
